FAERS Safety Report 6746702-3 (Version None)
Quarter: 2010Q2

REPORT INFORMATION
  Report Type: 
  Country: None (occurrence: None)
  Receive Date: 20100528
  Receipt Date: 20090526
  Transmission Date: 20101027
  Serious: No
  Sender: FDA-Public Use
  Company Number: A0778422A

PATIENT
  Age: 65 Year
  Sex: Female
  Weight: 68.2 kg

DRUGS (6)
  1. VENTOLIN [Suspect]
     Indication: ASTHMA
     Dosage: 2PUFF THREE TIMES PER DAY
     Route: 055
     Dates: start: 20090201
  2. ADVAIR DISKUS 100/50 [Suspect]
     Indication: ASTHMA
     Dosage: 1PUFF TWICE PER DAY
     Route: 055
     Dates: start: 20060501
  3. SINGULAIR [Concomitant]
  4. THEOPHYLLINE [Concomitant]
  5. GLIMEPIRIDE [Concomitant]
  6. PREDNISONE TAB [Concomitant]

REACTIONS (4)
  - BRONCHITIS [None]
  - DRUG INEFFECTIVE [None]
  - DYSPNOEA [None]
  - WHEEZING [None]
